FAERS Safety Report 4303369-1 (Version None)
Quarter: 2004Q1

REPORT INFORMATION
  Report Type: 
  Country: None (occurrence: None)
  Receive Date: 20040223
  Receipt Date: 20040212
  Transmission Date: 20041129
  Serious: Yes (Life-Threatening)
  Sender: FDA-Public Use
  Company Number: 04P-114-0250400-00

PATIENT
  Age: 14 Year
  Sex: Male

DRUGS (3)
  1. SEVOFLURANE LIQUID FOR INHALATION (ULTANE LIQUID FOR INHALATION) (SEVO [Suspect]
     Indication: GENERAL ANAESTHESIA
  2. CISAPRIDE [Suspect]
     Indication: LEUKAEMIA
  3. FLUCONAZOLE [Suspect]
     Indication: LEUKAEMIA

REACTIONS (4)
  - DRUG INTERACTION [None]
  - ELECTROCARDIOGRAM QT PROLONGED [None]
  - SHOCK [None]
  - VENTRICULAR TACHYCARDIA [None]
